FAERS Safety Report 7009619-5 (Version None)
Quarter: 2010Q3

REPORT INFORMATION
  Report Type: 
  Country: None (occurrence: None)
  Receive Date: 20100923
  Receipt Date: 20100915
  Transmission Date: 20110219
  Serious: Yes (Hospitalization)
  Sender: FDA-Public Use
  Company Number: PHHY2010CO61709

PATIENT
  Sex: Female

DRUGS (3)
  1. EXELON [Suspect]
     Indication: DEMENTIA ALZHEIMER'S TYPE
     Dosage: 4.6MG/24HR, 1 PATCH
     Route: 062
     Dates: start: 20100630
  2. AMLODIPINE [Concomitant]
  3. OMEPRAZOLE [Concomitant]

REACTIONS (3)
  - DECREASED APPETITE [None]
  - DEHYDRATION [None]
  - MALNUTRITION [None]
